FAERS Safety Report 25956096 (Version 1)
Quarter: 2025Q4

REPORT INFORMATION
  Report Type: Other
  Country: EU (occurrence: EU)
  Receive Date: 20251024
  Receipt Date: 20251024
  Transmission Date: 20260117
  Serious: Yes (Other)
  Sender: STRIDES
  Company Number: EU-ZENTIVA-2025-ZT-049116

PATIENT
  Sex: Female

DRUGS (1)
  1. IBUPROFEN [Suspect]
     Active Substance: IBUPROFEN
     Indication: Product used for unknown indication
     Dosage: 800 MILLIGRAM
     Route: 065

REACTIONS (3)
  - Anaphylactic shock [Unknown]
  - Product storage error [Unknown]
  - Expired product administered [Unknown]

NARRATIVE: CASE EVENT DATE: 20250529
